FAERS Safety Report 19845046 (Version 2)
Quarter: 2021Q3

REPORT INFORMATION
  Report Type: Report from Study
  Country: PL (occurrence: PL)
  Receive Date: 20210916
  Receipt Date: 20210920
  Transmission Date: 20211014
  Serious: Yes (Death)
  Sender: FDA-Public Use
  Company Number: PL-ROCHE-2910560

PATIENT
  Age: 61 Year
  Sex: Male
  Weight: 62.25 kg

DRUGS (5)
  1. FENTANYL. [Concomitant]
     Active Substance: FENTANYL
     Dosage: DOSE 125 UG
     Route: 062
     Dates: start: 20210201
  2. METAMIZOLE [Concomitant]
     Active Substance: METAMIZOLE
     Dates: start: 20210201
  3. TIRAGOLUMAB. [Suspect]
     Active Substance: TIRAGOLUMAB
     Indication: SQUAMOUS CELL CARCINOMA
     Dosage: MOST RECENT DOSE OF STUDY DRUG (600 MG) PRIOR TO AE/SAE: 06/SEP/2021
     Route: 042
     Dates: start: 20210906
  4. ATEZOLIZUMAB. [Suspect]
     Active Substance: ATEZOLIZUMAB
     Indication: SQUAMOUS CELL CARCINOMA
     Dosage: MOST RECENT DOSE OF STUDY DRUG PRIOR TO AE/SAE: 06/SEP/2021, 1200 MG
     Route: 042
     Dates: start: 20210906
  5. GABAPENTIN. [Concomitant]
     Active Substance: GABAPENTIN
     Route: 048
     Dates: start: 20210201

REACTIONS (1)
  - Tumour haemorrhage [Fatal]

NARRATIVE: CASE EVENT DATE: 20210910
